FAERS Safety Report 7620326-8 (Version None)
Quarter: 2011Q3

REPORT INFORMATION
  Report Type: 
  Country: None (occurrence: None)
  Receive Date: 20110719
  Receipt Date: 20110712
  Transmission Date: 20111222
  Serious: Yes (Hospitalization)
  Sender: FDA-Public Use
  Company Number: PHHY2011US62006

PATIENT
  Sex: Male

DRUGS (5)
  1. PREVACID [Concomitant]
     Indication: GASTROOESOPHAGEAL REFLUX DISEASE
     Dosage: 60 G, UNK
     Route: 048
  2. RECLAST [Suspect]
     Indication: OSTEOPOROSIS
     Dosage: UNK UKN, UNK
     Dates: start: 20101228
  3. SPIRONOLACTONE [Concomitant]
     Indication: EFFUSION
     Dosage: UNK UKN, UNK
  4. FENOFIBRATE [Concomitant]
     Indication: HYPERTRIGLYCERIDAEMIA
     Dosage: 50 G, UNK
  5. ATENOLOL [Concomitant]
     Indication: HYPERTENSION
     Dosage: 100 G, UNK
     Route: 048

REACTIONS (1)
  - PLEURAL EFFUSION [None]
